FAERS Safety Report 14377196 (Version 1)
Quarter: 2018Q1

REPORT INFORMATION
  Report Type: Spontaneous
  Country: US (occurrence: US)
  Receive Date: 20180111
  Receipt Date: 20180111
  Transmission Date: 20180509
  Serious: No
  Sender: FDA-Public Use
  Company Number: US-DRREDDYS-USA/USA/17/0087010

PATIENT
  Sex: Male
  Weight: 71.66 kg

DRUGS (4)
  1. NICOTINE. [Suspect]
     Active Substance: NICOTINE
     Indication: SMOKING CESSATION THERAPY
     Route: 061
     Dates: start: 2016
  2. NICOTINE. [Suspect]
     Active Substance: NICOTINE
     Route: 061
  3. NICOTINE. [Suspect]
     Active Substance: NICOTINE
     Route: 061
     Dates: end: 201702
  4. CARBAMAZEPINE. [Concomitant]
     Active Substance: CARBAMAZEPINE
     Indication: PRODUCT USED FOR UNKNOWN INDICATION
     Route: 065

REACTIONS (3)
  - Product quality issue [Unknown]
  - Nicotine dependence [Not Recovered/Not Resolved]
  - Inappropriate schedule of drug administration [Unknown]
